FAERS Safety Report 14329205 (Version 2)
Quarter: 2018Q4

REPORT INFORMATION
  Report Type: Spontaneous
  Country: DE (occurrence: DE)
  Receive Date: 20171227
  Receipt Date: 20181016
  Transmission Date: 20190204
  Serious: Yes (Other)
  Sender: FDA-Public Use
  Company Number: DE-ALLERGAN-1773573US

PATIENT
  Age: 80 Year
  Sex: Male
  Weight: 70 kg

DRUGS (3)
  1. GLAUPAX [Suspect]
     Active Substance: ACETAZOLAMIDE
     Dosage: 125 MG, TID
     Route: 048
     Dates: start: 2010
  2. RISEDRONATE SODIUM - BP [Suspect]
     Active Substance: RISEDRONATE SODIUM
     Indication: OSTEOPOROSIS
     Dosage: 35 MG, Q WEEK
     Route: 048
     Dates: start: 20171004
  3. GLAUPAX [Suspect]
     Active Substance: ACETAZOLAMIDE
     Indication: ATAXIA
     Dosage: 750 MG, QD
     Route: 048
     Dates: start: 2010

REACTIONS (1)
  - Diplegia [Recovered/Resolved]

NARRATIVE: CASE EVENT DATE: 20171004
